FAERS Safety Report 5215454-0 (Version None)
Quarter: 2007Q1

REPORT INFORMATION
  Report Type: 
  Country: None (occurrence: None)
  Receive Date: 20070119
  Receipt Date: 20070119
  Transmission Date: 20070707
  Serious: Yes (Life-Threatening, Hospitalization)
  Sender: FDA-Public Use
  Company Number: None

PATIENT
  Age: 60 Year
  Sex: Female
  Weight: 68.95 kg

DRUGS (10)
  1. IODIXANOL 320 MGI/ML AMERSHAM HEALTH [Suspect]
     Indication: AORTOGRAM
     Dosage: 150ML   ONCE   IV
     Route: 042
     Dates: start: 20060816, end: 20060816
  2. MULTIPLE VITAMIN [Concomitant]
  3. ASPIRIN [Concomitant]
  4. PLAVIX [Concomitant]
  5. PRILOSEC [Concomitant]
  6. LIPITOR [Concomitant]
  7. FOSRENOL [Concomitant]
  8. NORVASC [Concomitant]
  9. CLONIDINE [Concomitant]
  10. VASOTEC [Concomitant]

REACTIONS (5)
  - ANAPHYLACTIC REACTION [None]
  - CONTRAST MEDIA REACTION [None]
  - SPEECH DISORDER [None]
  - SWELLING FACE [None]
  - SWOLLEN TONGUE [None]
